FAERS Safety Report 9485655 (Version 1)
Quarter: 2013Q3

REPORT INFORMATION
  Report Type: Spontaneous
  Country: US (occurrence: US)
  Receive Date: 20130829
  Receipt Date: 20130829
  Transmission Date: 20140515
  Serious: Yes (Other)
  Sender: FDA-Public Use
  Company Number: US-BRISTOL-MYERS SQUIBB COMPANY-19202498

PATIENT
  Age: 66 Year
  Sex: Male
  Weight: 95.24 kg

DRUGS (5)
  1. COUMADIN [Suspect]
     Dates: start: 2006
  2. BABY ASPIRIN [Suspect]
     Dates: start: 2006
  3. CRESTOR [Concomitant]
  4. DIOVAN [Concomitant]
  5. METOPROLOL [Concomitant]

REACTIONS (2)
  - Angina pectoris [Unknown]
  - International normalised ratio abnormal [Unknown]
